FAERS Safety Report 14098916 (Version 4)
Quarter: 2018Q2

REPORT INFORMATION
  Report Type: Report from Study
  Country: CA (occurrence: CA)
  Receive Date: 20171017
  Receipt Date: 20180430
  Transmission Date: 20180711
  Serious: Yes (Other)
  Sender: FDA-Public Use
  Company Number: CA-GLAXOSMITHKLINE-CA2017GSK091338

PATIENT
  Sex: Female

DRUGS (8)
  1. MEPOLIZUMAB [Suspect]
     Active Substance: MEPOLIZUMAB
     Dosage: 100 MG, Z (MONTHLY)
     Route: 042
     Dates: start: 20180206
  2. EMPRACET [Concomitant]
     Indication: LIGAMENT SPRAIN
     Dosage: UNK
  3. MEPOLIZUMAB [Suspect]
     Active Substance: MEPOLIZUMAB
     Dosage: 100 MG, Z (MONTHLY)
     Dates: start: 20170911
  4. MEPOLIZUMAB [Suspect]
     Active Substance: MEPOLIZUMAB
     Dosage: 100 MG, Z (MONTHLY)
     Dates: start: 20171011
  5. NICOTINE. [Concomitant]
     Active Substance: NICOTINE
     Indication: SMOKING CESSATION THERAPY
     Dosage: UNK UNK, BID
  6. MEPOLIZUMAB [Suspect]
     Active Substance: MEPOLIZUMAB
     Indication: ASTHMA
     Dosage: 100 MG, Z (MONTHLY)
     Route: 042
     Dates: start: 20170511
  7. MEPOLIZUMAB [Suspect]
     Active Substance: MEPOLIZUMAB
     Dosage: 100 MG, Z  (MONTHLY)
     Route: 042
  8. MORPHINE [Concomitant]
     Active Substance: MORPHINE
     Indication: LIGAMENT SPRAIN
     Dosage: UNK
     Route: 048

REACTIONS (10)
  - Sinusitis [Not Recovered/Not Resolved]
  - Nasal congestion [Unknown]
  - Headache [Unknown]
  - Abdominal discomfort [Unknown]
  - Weight increased [Unknown]
  - Abdominal distension [Unknown]
  - Peripheral swelling [Unknown]
  - Respiratory tract infection [Unknown]
  - Nasal discharge discolouration [Unknown]
  - Dyspnoea [Unknown]
